FAERS Safety Report 11071640 (Version 1)
Quarter: 2015Q2

REPORT INFORMATION
  Report Type: Spontaneous
  Country: US (occurrence: None)
  Receive Date: 20150427
  Receipt Date: 20150427
  Transmission Date: 20150821
  Serious: Yes (Hospitalization)
  Sender: FDA-Public Use
  Company Number: None

PATIENT
  Age: 69 Year
  Sex: Male
  Weight: 84 kg

DRUGS (2)
  1. FLUDARABINE PHOSPHATE. [Concomitant]
     Active Substance: FLUDARABINE PHOSPHATE
     Dates: end: 20141013
  2. BUSULFAN [Suspect]
     Active Substance: BUSULFAN
     Dates: end: 20141013

REACTIONS (12)
  - Febrile neutropenia [None]
  - Retinal haemorrhage [None]
  - Nausea [None]
  - Fatigue [None]
  - Muscular weakness [None]
  - Mucosal inflammation [None]
  - Diarrhoea [None]
  - Graft versus host disease [None]
  - Rash erythematous [None]
  - Malnutrition [None]
  - Pneumonia [None]
  - Abdominal pain [None]

NARRATIVE: CASE EVENT DATE: 20140404
